FAERS Safety Report 6570214-3 (Version None)
Quarter: 2010Q1

REPORT INFORMATION
  Report Type: 
  Country: None (occurrence: None)
  Receive Date: 20100202
  Receipt Date: 20100202
  Transmission Date: 20100710
  Serious: Yes (Other)
  Sender: FDA-Public Use
  Company Number: None

PATIENT
  Age: 48 Year
  Sex: Male
  Weight: 136.0791 kg

DRUGS (1)
  1. CORICIDIN [Suspect]
     Indication: NASOPHARYNGITIS
     Dosage: 2 TABLETS EVERY 4 HOURS PO
     Route: 048
     Dates: start: 20100130, end: 20100130

REACTIONS (1)
  - EYE IRRITATION [None]
